FAERS Safety Report 6664624-3 (Version None)
Quarter: 2010Q1

REPORT INFORMATION
  Report Type: 
  Country: None (occurrence: None)
  Receive Date: 20100330
  Receipt Date: 20100115
  Transmission Date: 20100710
  Serious: Yes (Hospitalization, Other)
  Sender: FDA-Public Use
  Company Number: 6057358

PATIENT
  Age: 37 Year
  Sex: Female

DRUGS (2)
  1. LEVOTHYROXINE SODIUM [Suspect]
     Indication: THYROIDECTOMY
     Dosage: (200 MCG), ORAL, (25 MCG), ORAL
     Route: 048
     Dates: start: 20090401, end: 20090520
  2. LEVOTHYROXINE SODIUM [Suspect]
     Indication: THYROIDECTOMY
     Dosage: (200 MCG), ORAL, (25 MCG), ORAL
     Route: 048
     Dates: start: 20090401, end: 20090520

REACTIONS (2)
  - ACNE [None]
  - SKIN LESION [None]
